FAERS Safety Report 5412918-1 (Version None)
Quarter: 2007Q3

REPORT INFORMATION
  Report Type: 
  Country: None (occurrence: None)
  Receive Date: 20070813
  Receipt Date: 20070801
  Transmission Date: 20080115
  Serious: Yes (Other)
  Sender: FDA-Public Use
  Company Number: US-PFIZER INC-2006027289

PATIENT
  Sex: Female
  Weight: 59.9 kg

DRUGS (2)
  1. BEXTRA [Suspect]
     Indication: NECK PAIN
  2. PRILOSEC [Concomitant]

REACTIONS (1)
  - DRUG ERUPTION [None]
